FAERS Safety Report 24545914 (Version 1)
Quarter: 2024Q4

REPORT INFORMATION
  Report Type: Spontaneous
  Country: US (occurrence: US)
  Receive Date: 20241024
  Receipt Date: 20241024
  Transmission Date: 20250115
  Serious: No
  Sender: UPSHER SMITH LABORATORIES
  Company Number: US-UPSHER-SMITH LABORATORIES, LLC-2024USL00515

PATIENT
  Age: 76 Year
  Sex: Male

DRUGS (2)
  1. JANTOVEN [Suspect]
     Active Substance: WARFARIN SODIUM
     Indication: Coagulopathy
     Dosage: 4 MG, 1X/DAY TAKEN IN CONJUCTION WITH 3 MG TABLET FOR A TODALY DOSE OF 7 MG
     Dates: start: 202406, end: 202406
  2. JANTOVEN [Suspect]
     Active Substance: WARFARIN SODIUM
     Indication: Coagulopathy
     Dosage: 3 MG, 1X/DAY TAKEN IN CONJUCTION WITH 4 MG TABLET FOR A TODALY DOSE OF 7 MG
     Dates: start: 20240606, end: 202406

REACTIONS (1)
  - International normalised ratio decreased [Unknown]

NARRATIVE: CASE EVENT DATE: 20240601
